FAERS Safety Report 11173352 (Version 1)
Quarter: 2015Q2

REPORT INFORMATION
  Report Type: Spontaneous
  Country: US (occurrence: US)
  Receive Date: 20150608
  Receipt Date: 20150608
  Transmission Date: 20150821
  Serious: No
  Sender: FDA-Public Use
  Company Number: US-009507513-1505USA007422

PATIENT
  Age: 29 Year
  Sex: Female

DRUGS (2)
  1. NUVARING [Suspect]
     Active Substance: ETHINYL ESTRADIOL\ETONOGESTREL
     Indication: CONTRACEPTION
     Dosage: 0.12 MG/0.015 MG, INSERTS THE NUVARING FOR THREE WEEKS, FOLLOWED BY A ONE WEEK RING-FREE INTERVAL
     Route: 067
     Dates: start: 20070320
  2. NUVARING [Suspect]
     Active Substance: ETHINYL ESTRADIOL\ETONOGESTREL
     Dosage: 0.12 MG/0.015 MG, INSERTS THE NUVARING FOR THREE WEEKS, FOLLOWED BY A ONE WEEK RING-FREE INTERVAL
     Route: 067
     Dates: start: 20070320

REACTIONS (2)
  - Menorrhagia [Not Recovered/Not Resolved]
  - Brain neoplasm [Unknown]

NARRATIVE: CASE EVENT DATE: 201502
